FAERS Safety Report 6703654-X (Version None)
Quarter: 2010Q2

REPORT INFORMATION
  Report Type: 
  Country: None (occurrence: None)
  Receive Date: 20100430
  Receipt Date: 20100409
  Transmission Date: 20101027
  Serious: Yes (Hospitalization)
  Sender: FDA-Public Use
  Company Number: IT-ASTRAZENECA-2010SE15651

PATIENT
  Age: 17934 Day
  Sex: Female

DRUGS (4)
  1. SEROQUEL XR [Suspect]
     Route: 048
     Dates: start: 20090228, end: 20100224
  2. SEROQUEL XR [Suspect]
     Route: 048
  3. METHADONE HCL [Concomitant]
     Route: 048
  4. LORAZEPAM [Concomitant]
     Route: 048

REACTIONS (3)
  - AGITATION [None]
  - ANXIETY [None]
  - INSOMNIA [None]
